FAERS Safety Report 10906780 (Version 1)
Quarter: 2015Q1

REPORT INFORMATION
  Report Type: Spontaneous
  Country: US (occurrence: None)
  Receive Date: 20150309
  Receipt Date: 20150309
  Transmission Date: 20150721
  Serious: No
  Sender: FDA-Public Use
  Company Number: None

PATIENT
  Sex: Male
  Weight: 104.33 kg

DRUGS (4)
  1. ZIPRASIDONE HCL [Suspect]
     Active Substance: ZIPRASIDONE HYDROCHLORIDE
     Indication: MENTAL DISORDER
     Dosage: TAKE 1 CAPSULE TWICE DAILY X 5 DAYS
     Route: 048
     Dates: start: 20140803, end: 20140811
  2. LOSARTAN [Concomitant]
     Active Substance: LOSARTAN
  3. ZIPRASIDONE HCL [Suspect]
     Active Substance: ZIPRASIDONE HYDROCHLORIDE
     Indication: EMOTIONAL DISORDER
     Dosage: TAKE 1 CAPSULE TWICE DAILY X 5 DAYS
     Route: 048
     Dates: start: 20140803, end: 20140811
  4. ALPRAZOLAM. [Suspect]
     Active Substance: ALPRAZOLAM

REACTIONS (8)
  - Photophobia [None]
  - Mobility decreased [None]
  - Headache [None]
  - Fatigue [None]
  - Somnolence [None]
  - Aggression [None]
  - Impaired work ability [None]
  - Hallucination, auditory [None]

NARRATIVE: CASE EVENT DATE: 20140804
